FAERS Safety Report 10191821 (Version 3)
Quarter: 2014Q4

REPORT INFORMATION
  Report Type: Spontaneous
  Country: US (occurrence: None)
  Receive Date: 20140521
  Receipt Date: 20141216
  Transmission Date: 20150528
  Serious: Yes (Hospitalization, Other)
  Sender: FDA-Public Use
  Company Number: 2014-US-005844

PATIENT
  Age: 40 Year
  Sex: Female
  Weight: 54.4 kg

DRUGS (1)
  1. XYREM [Suspect]
     Active Substance: SODIUM OXYBATE
     Indication: NARCOLEPSY
     Route: 048
     Dates: start: 201401, end: 2014

REACTIONS (8)
  - Peripheral swelling [None]
  - Fluid retention [None]
  - Bedridden [None]
  - Thirst [None]
  - Pain in extremity [None]
  - Swelling face [None]
  - Intestinal perforation [None]
  - Intestinal operation [None]

NARRATIVE: CASE EVENT DATE: 20140503
